FAERS Safety Report 4399988-7 (Version None)
Quarter: 2004Q3

REPORT INFORMATION
  Report Type: 
  Country: None (occurrence: None)
  Receive Date: 20040716
  Receipt Date: 20040726
  Transmission Date: 20050211
  Serious: Yes (Death)
  Sender: FDA-Public Use
  Company Number: 2004222742MX

PATIENT
  Sex: Male

DRUGS (2)
  1. LINCOCIN [Suspect]
     Dosage: 600 MG, SINGLE, ORAL
     Route: 048
  2. MOTRIN [Suspect]

REACTIONS (1)
  - ANAPHYLACTOID SHOCK [None]
